FAERS Safety Report 11185525 (Version 2)
Quarter: 2015Q2

REPORT INFORMATION
  Report Type: Spontaneous
  Country: JP (occurrence: JP)
  Receive Date: 20150612
  Receipt Date: 20150618
  Transmission Date: 20150821
  Serious: Yes (Other)
  Sender: FDA-Public Use
  Company Number: JP-009507513-1506JPN004029

PATIENT
  Age: 20 Year
  Sex: Male
  Weight: 30 kg

DRUGS (19)
  1. BISOLVON [Concomitant]
     Active Substance: BROMHEXINE HYDROCHLORIDE
     Indication: GRAFT VERSUS HOST DISEASE IN LUNG
     Dosage: 4 MG, TID
     Route: 048
     Dates: start: 2014, end: 20141216
  2. ALENDRONATE SODIUM. [Concomitant]
     Active Substance: ALENDRONATE SODIUM
     Indication: OSTEOPOROSIS PROPHYLAXIS
     Dosage: 35 MG, QW
     Route: 048
     Dates: start: 2010
  3. SAMITREL [Concomitant]
     Active Substance: ATOVAQUONE
     Indication: ANTIFUNGAL PROPHYLAXIS
     Dosage: 10 ML, QD
     Route: 048
     Dates: start: 20141001, end: 20141014
  4. CANCIDAS [Suspect]
     Active Substance: CASPOFUNGIN ACETATE
     Indication: BRONCHOPULMONARY ASPERGILLOSIS
     Dosage: 50 MG, QD
     Route: 041
     Dates: start: 20141001, end: 20141214
  5. VFEND [Concomitant]
     Active Substance: VORICONAZOLE
     Indication: BRONCHOPULMONARY ASPERGILLOSIS
     Dosage: 450 MG, QD
     Route: 048
     Dates: start: 20131001, end: 20140929
  6. GASMOTIN [Concomitant]
     Active Substance: MOSAPRIDE CITRATE
     Indication: GASTROINTESTINAL DISORDER
     Dosage: 5 MG, TID
     Route: 048
     Dates: start: 2014, end: 20141216
  7. ROZEREM [Concomitant]
     Active Substance: RAMELTEON
     Indication: INSOMNIA
     Dosage: 8 MG, QD
     Route: 048
     Dates: start: 2014, end: 20141218
  8. CELLCEPT [Concomitant]
     Active Substance: MYCOPHENOLATE MOFETIL\MYCOPHENOLATE MOFETIL HYDROCHLORIDE
     Indication: CHRONIC GRAFT VERSUS HOST DISEASE
     Dosage: 2 DF, TID
     Route: 048
     Dates: start: 2013, end: 20141216
  9. YODEL S [Concomitant]
     Active Substance: SENNA LEAF\SENNOSIDES\SENNOSIDES A AND B
     Indication: GASTROINTESTINAL DISORDER
     Dosage: 160 MG, QD
     Route: 048
     Dates: start: 2014, end: 20141014
  10. GASCON (DIMETHICONE) [Concomitant]
     Active Substance: DIMETHICONE
     Indication: GASTROINTESTINAL DISORDER
     Dosage: 4 ML, BID
     Route: 048
     Dates: start: 2014, end: 20141216
  11. CANCIDAS [Suspect]
     Active Substance: CASPOFUNGIN ACETATE
     Indication: BRONCHOPULMONARY ASPERGILLOSIS
     Dosage: 70 MG, QD
     Route: 041
     Dates: start: 20140930, end: 20140930
  12. PREDNISOLONE. [Concomitant]
     Active Substance: PREDNISOLONE
     Indication: CHRONIC GRAFT VERSUS HOST DISEASE
     Dosage: 10 MG, TID
     Route: 048
     Dates: start: 201008
  13. DAI-KENCHU-TO [Concomitant]
     Active Substance: MALTOSE
     Indication: GASTROINTESTINAL DISORDER
     Dosage: 2.5 G, TID
     Route: 048
     Dates: start: 2014, end: 20141216
  14. AMBISOME [Concomitant]
     Active Substance: AMPHOTERICIN B
     Indication: BRONCHOPULMONARY ASPERGILLOSIS
     Dosage: 150 MG, QD
     Route: 051
     Dates: start: 20141002, end: 20141016
  15. CARBOCYSTEINE [Concomitant]
     Active Substance: CARBOCYSTEINE
     Indication: GRAFT VERSUS HOST DISEASE IN LUNG
     Dosage: 5 ML, TID
     Route: 048
     Dates: start: 2013
  16. CLEANAL [Concomitant]
     Active Substance: FUDOSTEINE
     Indication: GRAFT VERSUS HOST DISEASE IN LUNG
     Dosage: 200 MG, TID
     Route: 048
     Dates: start: 2014, end: 20141216
  17. NEO-MINOPHAGEN C [Concomitant]
     Active Substance: AMMONIUM GLYCYRRHIZATE
     Indication: PROPHYLAXIS
     Dosage: 1 DF, QD
     Route: 051
     Dates: start: 20141001, end: 20141214
  18. VFEND [Concomitant]
     Active Substance: VORICONAZOLE
     Indication: BRONCHOPULMONARY ASPERGILLOSIS
     Dosage: 120 MG, BID
     Route: 051
     Dates: start: 20140930, end: 20141002
  19. PIARLE [Concomitant]
     Indication: GASTROINTESTINAL DISORDER
     Dosage: 20 ML, TID
     Route: 048
     Dates: start: 2014

REACTIONS (1)
  - Pneumonia aspiration [Recovering/Resolving]

NARRATIVE: CASE EVENT DATE: 20141002
